FAERS Safety Report 18265227 (Version 1)
Quarter: 2020Q3

REPORT INFORMATION
  Report Type: Spontaneous
  Country: US (occurrence: US)
  Receive Date: 20200915
  Receipt Date: 20200915
  Transmission Date: 20201103
  Serious: No
  Sender: FDA-Public Use
  Company Number: US-JIANGSU HENGRUI MEDICINE CO., LTD.-2090715

PATIENT
  Age: 56 Year
  Sex: Female

DRUGS (10)
  1. RICE [CARBOPLATIN] [Suspect]
     Active Substance: CARBOPLATIN
     Dates: start: 20190127, end: 20190129
  2. R?GDP [DEXAMETHASONE] [Suspect]
     Active Substance: DEXAMETHASONE
  3. RICE [ETOPOSIDE PHOSPHATE] [Suspect]
     Active Substance: ETOPOSIDE PHOSPHATE
  4. R CHOP(CYCLOPHOSPHAMIDE, DOXORUBICIN HYDROCHLORIDE, PREDNISONE, RITUXI [Suspect]
     Active Substance: CYCLOPHOSPHAMIDE\DOXORUBICIN\PREDNISONE\RITUXIMAB\VINCRISTINE
     Dates: start: 20190823, end: 20191205
  5. R?GDP [CISPLATIN] [Suspect]
     Active Substance: CISPLATIN
  6. RICE [RITUXIMAB] [Suspect]
     Active Substance: RITUXIMAB
  7. RICE [IFOSFAMIDE] [Suspect]
     Active Substance: IFOSFAMIDE
  8. R?GDP [RITUXIMAB] [Suspect]
     Active Substance: RITUXIMAB
  9. CYCLOPHOSPHAMIDE FOR INJECTION USP, 500 MG, 1 G AND 2 G PER SINGLE?DOS [Suspect]
     Active Substance: CYCLOPHOSPHAMIDE
     Indication: DIFFUSE LARGE B-CELL LYMPHOMA
     Dates: start: 20190823, end: 20191205
  10. R?GDP [GEMCITABINE] [Suspect]
     Active Substance: GEMCITABINE

REACTIONS (1)
  - Neoplasm progression [Not Recovered/Not Resolved]
